FAERS Safety Report 6897947-3 (Version None)
Quarter: 2010Q3

REPORT INFORMATION
  Report Type: 
  Country: None (occurrence: None)
  Receive Date: 20100802
  Receipt Date: 20070810
  Transmission Date: 20110219
  Serious: Yes (Other)
  Sender: FDA-Public Use
  Company Number: US-PFIZER INC-2007067599

PATIENT
  Sex: Female
  Weight: 61.4 kg

DRUGS (4)
  1. LYRICA [Suspect]
     Indication: NEURALGIA
     Dates: start: 20050101, end: 20060101
  2. TOPAMAX [Concomitant]
  3. IRON [Concomitant]
  4. CALCIUM WITH VITAMIN D [Concomitant]

REACTIONS (4)
  - ABDOMINAL DISTENSION [None]
  - COELIAC DISEASE [None]
  - OSTEOPENIA [None]
  - WEIGHT INCREASED [None]
